FAERS Safety Report 26079869 (Version 1)
Quarter: 2025Q4

REPORT INFORMATION
  Report Type: Spontaneous
  Country: US (occurrence: US)
  Receive Date: 20251123
  Receipt Date: 20251123
  Transmission Date: 20260117
  Serious: No
  Sender: BRISTOL-MYERS SQUIBB COMPANY
  Company Number: US-BRISTOL-MYERS SQUIBB COMPANY-2025-158094

PATIENT
  Age: 44 Year
  Sex: Male

DRUGS (3)
  1. COBENFY [Suspect]
     Active Substance: TROSPIUM CHLORIDE\XANOMELINE
     Indication: Schizophrenia
     Dosage: BID?50MG/20MG
     Route: 048
     Dates: start: 20251027, end: 20251109
  2. COBENFY [Suspect]
     Active Substance: TROSPIUM CHLORIDE\XANOMELINE
     Dosage: BID?100MG/20MG
     Route: 048
  3. COBENFY [Suspect]
     Active Substance: TROSPIUM CHLORIDE\XANOMELINE
     Dosage: BID?125MG/30MG
     Route: 048

REACTIONS (2)
  - Extrapyramidal disorder [Recovered/Resolved]
  - Eye movement disorder [Recovered/Resolved]

NARRATIVE: CASE EVENT DATE: 20251029
